FAERS Safety Report 14869356 (Version 4)
Quarter: 2018Q3

REPORT INFORMATION
  Report Type: Spontaneous
  Country: US (occurrence: US)
  Receive Date: 20180509
  Receipt Date: 20180831
  Transmission Date: 20181010
  Serious: No
  Sender: FDA-Public Use
  Company Number: US-PFIZER INC-2017277992

PATIENT
  Age: 12 Year
  Sex: Male
  Weight: 28.12 kg

DRUGS (4)
  1. GENOTROPIN [Suspect]
     Active Substance: SOMATROPIN
     Dosage: 0.2 MG, DAILY
  2. GENOTROPIN [Suspect]
     Active Substance: SOMATROPIN
     Dosage: 8 MG, 1X/DAY (INJECTION, USUALLY HIS LEGS OR HIS BOOTY, ONE TIME AT NIGHT)
     Dates: start: 2018
  3. GENOTROPIN [Suspect]
     Active Substance: SOMATROPIN
     Indication: BODY HEIGHT BELOW NORMAL
     Dosage: 0.8 MG, 1X/DAY, (EVERY NIGHT)
     Dates: start: 2017
  4. GENOTROPIN [Suspect]
     Active Substance: SOMATROPIN
     Indication: BODY HEIGHT BELOW NORMAL
     Dosage: 2 MG, DAILY
     Dates: start: 20170602

REACTIONS (3)
  - Wrong technique in device usage process [Unknown]
  - Headache [Unknown]
  - Drug dose omission [Unknown]

NARRATIVE: CASE EVENT DATE: 20170807
